FAERS Safety Report 5315599-0 (Version None)
Quarter: 2007Q2

REPORT INFORMATION
  Report Type: 
  Country: None (occurrence: None)
  Receive Date: 20070427
  Receipt Date: 20070412
  Transmission Date: 20071010
  Serious: Yes (Disabling)
  Sender: FDA-Public Use
  Company Number: 230125M04USA

PATIENT
  Age: 40 Year
  Sex: Male

DRUGS (8)
  1. REBIF [Suspect]
     Indication: RELAPSING-REMITTING MULTIPLE SCLEROSIS
     Dosage: SEE IMAGE
     Dates: start: 20040326, end: 20060301
  2. REBIF [Suspect]
     Indication: RELAPSING-REMITTING MULTIPLE SCLEROSIS
     Dosage: SEE IMAGE
     Dates: start: 20060901
  3. AMANTADINE (AMANTADINE/00055901/) [Concomitant]
  4. VIOXX [Concomitant]
  5. CELEXA [Concomitant]
  6. BUTALBITAL (BUTALBITAL) [Concomitant]
  7. ACETAMINOPHEN [Concomitant]
  8. ZOLPIDEM [Concomitant]

REACTIONS (2)
  - MIGRAINE [None]
  - RETINAL EXUDATES [None]
